FAERS Safety Report 10430246 (Version 1)
Quarter: 2014Q3

REPORT INFORMATION
  Report Type: Spontaneous
  Country: GB (occurrence: None)
  Receive Date: 20140902
  Receipt Date: 20140902
  Transmission Date: 20150326
  Serious: Yes (Other)
  Sender: FDA-Public Use
  Company Number: NSR_01615_2014

PATIENT
  Age: 9 Month
  Sex: Male

DRUGS (2)
  1. PROPRANOLOL [Suspect]
     Active Substance: PROPRANOLOL\PROPRANOLOL HYDROCHLORIDE
     Indication: HAEMANGIOMA
     Dosage: GIVEN IN TWO DIVIDED DOSES
  2. TEETHING GEL [Suspect]
     Active Substance: BENZOCAINE
     Indication: TEETHING
     Dosage: DF

REACTIONS (3)
  - Convulsion [None]
  - Unresponsive to stimuli [None]
  - Hypoglycaemia [None]
